FAERS Safety Report 4676939-9 (Version None)
Quarter: 2005Q2

REPORT INFORMATION
  Report Type: 
  Country: None (occurrence: None)
  Receive Date: 20050526
  Receipt Date: 20050518
  Transmission Date: 20051028
  Serious: Yes (Hospitalization, Other)
  Sender: FDA-Public Use
  Company Number: 214652

PATIENT
  Age: 64 Year
  Sex: Female

DRUGS (3)
  1. XOLAIR [Suspect]
     Indication: ASTHMA
     Dates: start: 20030101
  2. NORVASC [Concomitant]
  3. EVISTA [Concomitant]

REACTIONS (2)
  - INTRACRANIAL ANEURYSM [None]
  - VISUAL DISTURBANCE [None]
